FAERS Safety Report 10748513 (Version 1)
Quarter: 2015Q1

REPORT INFORMATION
  Report Type: Spontaneous
  Country: US (occurrence: None)
  Receive Date: 20150120
  Receipt Date: 20150120
  Transmission Date: 20150721
  Serious: No
  Sender: FDA-Public Use
  Company Number: AEGR000982

PATIENT
  Sex: Female

DRUGS (6)
  1. ZETIA [Concomitant]
     Active Substance: EZETIMIBE
  2. JUXTAPID [Suspect]
     Active Substance: LOMITAPIDE MESYLATE
     Indication: BLOOD CHOLESTEROL INCREASED
     Route: 048
     Dates: start: 201411
  3. ASPIRIN (ASPIRIN) [Concomitant]
     Active Substance: ASPIRIN
  4. VITAMIN E [Concomitant]
     Active Substance: .ALPHA.-TOCOPHEROL
  5. RAMIPRIL. [Concomitant]
     Active Substance: RAMIPRIL
  6. METOPROLOL [Concomitant]
     Active Substance: METOPROLOL

REACTIONS (3)
  - Low density lipoprotein increased [None]
  - Blood cholesterol increased [None]
  - Off label use [None]

NARRATIVE: CASE EVENT DATE: 20141117
